FAERS Safety Report 8898932 (Version 1)
Quarter: 2012Q4

REPORT INFORMATION
  Report Type: 
  Country: FR (occurrence: FR)
  Receive Date: 20121109
  Receipt Date: 20121109
  Transmission Date: 20130627
  Serious: Yes (Life-Threatening, Hospitalization)
  Sender: FDA-Public Use
  Company Number: FR-ASTRAZENECA-2012SE84519

PATIENT
  Age: 25479 Day
  Sex: Female

DRUGS (8)
  1. XEROQUEL [Suspect]
     Route: 048
     Dates: start: 20120702, end: 20120728
  2. XEROQUEL [Suspect]
     Route: 048
     Dates: start: 20120816, end: 20120820
  3. RISPERDAL [Suspect]
     Route: 048
     Dates: start: 20120702, end: 20120728
  4. RISPERDAL [Suspect]
     Route: 048
     Dates: start: 20120816, end: 20120820
  5. HALDOL [Suspect]
     Route: 048
     Dates: start: 20120816, end: 20120820
  6. APROVEL [Suspect]
     Route: 048
     Dates: end: 20120822
  7. LYSANXIA [Suspect]
     Route: 048
     Dates: start: 20120702, end: 20120728
  8. LYSANXIA [Suspect]
     Route: 048
     Dates: start: 20120816, end: 20120822

REACTIONS (3)
  - Dermatitis bullous [Recovered/Resolved]
  - Neuroleptic malignant syndrome [Recovered/Resolved]
  - Eyelid oedema [Unknown]
